FAERS Safety Report 13948179 (Version 1)
Quarter: 2017Q3

REPORT INFORMATION
  Report Type: Spontaneous
  Country: US (occurrence: None)
  Receive Date: 20170907
  Receipt Date: 20170907
  Transmission Date: 20171128
  Serious: Yes (Other)
  Sender: FDA-Public Use
  Company Number: None

PATIENT

DRUGS (2)
  1. OLD SPICE BODY SPRAY DEODORANT [Suspect]
     Active Substance: COSMETICS
  2. OLD SPICE AP-DO UNSPECIFIED [Suspect]
     Active Substance: ALUMINUM ZIRCONIUM TRICHLOROHYDREX GLY
     Route: 061

REACTIONS (2)
  - Skin cancer [None]
  - Rash [None]
